FAERS Safety Report 12573832 (Version 1)
Quarter: 2016Q3

REPORT INFORMATION
  Report Type: Spontaneous
  Country: DE (occurrence: DE)
  Receive Date: 20160720
  Receipt Date: 20160720
  Transmission Date: 20161109
  Serious: Yes (Death)
  Sender: FDA-Public Use
  Company Number: DE-TEVA-675256GER

PATIENT
  Age: 25 Year
  Sex: Female
  Weight: 55 kg

DRUGS (1)
  1. LOPERAMID [Suspect]
     Active Substance: LOPERAMIDE
     Indication: GASTROENTERITIS
     Route: 048
     Dates: start: 20160622, end: 20160623

REACTIONS (7)
  - Sedation [Fatal]
  - Drug effect increased [Fatal]
  - Resuscitation [Fatal]
  - Brain injury [Fatal]
  - Aspiration [Fatal]
  - Disturbance in attention [Fatal]
  - Food interaction [Fatal]

NARRATIVE: CASE EVENT DATE: 20160623
